FAERS Safety Report 19525595 (Version 1)
Quarter: 2021Q3

REPORT INFORMATION
  Report Type: Spontaneous
  Country: US (occurrence: US)
  Receive Date: 20210712
  Receipt Date: 20210712
  Transmission Date: 20211014
  Serious: No
  Sender: FDA-Public Use
  Company Number: US-SA-2021SA226226

PATIENT
  Age: 46 Year
  Sex: Female

DRUGS (9)
  1. VITAMINS NOS [Concomitant]
     Active Substance: VITAMINS
  2. ZYRTEC?D [Concomitant]
     Active Substance: CETIRIZINE HYDROCHLORIDE\PSEUDOEPHEDRINE HYDROCHLORIDE
  3. DUPIXENT [Suspect]
     Active Substance: DUPILUMAB
     Indication: NASAL POLYPS
     Dosage: 300 MG, QOW
     Route: 058
     Dates: start: 20210303
  4. FLONASE ALLERGY RELIEF [Concomitant]
     Active Substance: FLUTICASONE PROPIONATE
  5. VITAMIN D NOS [Concomitant]
     Active Substance: VITAMIN D NOS
  6. SINGULAIR [Concomitant]
     Active Substance: MONTELUKAST SODIUM
  7. VITAMIN K1 [Concomitant]
     Active Substance: PHYTONADIONE
  8. ALBUTEROL SULFATE. [Concomitant]
     Active Substance: ALBUTEROL SULFATE
  9. WIXELA INHUB [Concomitant]
     Active Substance: FLUTICASONE PROPIONATE\SALMETEROL XINAFOATE

REACTIONS (1)
  - Abnormal sensation in eye [Unknown]

NARRATIVE: CASE EVENT DATE: 202104
